FAERS Safety Report 11437140 (Version 1)
Quarter: 2015Q3

REPORT INFORMATION
  Report Type: Spontaneous
  Country: US (occurrence: US)
  Receive Date: 20150831
  Receipt Date: 20150831
  Transmission Date: 20151125
  Serious: No
  Sender: FDA-Public Use
  Company Number: US-PFIZER INC-2015286494

PATIENT
  Age: 70 Year
  Sex: Female
  Weight: 70 kg

DRUGS (6)
  1. ASPIRIN. [Concomitant]
     Active Substance: ASPIRIN
     Dosage: UNK
  2. REVATIO [Suspect]
     Active Substance: SILDENAFIL CITRATE
     Dosage: 20 MG, 3X/DAY
  3. REMODULIN [Suspect]
     Active Substance: TREPROSTINIL
     Dosage: UNK (0.01325 ?G/KG/MIN)
     Route: 058
     Dates: start: 20150206
  4. LETAIRIS [Suspect]
     Active Substance: AMBRISENTAN
     Indication: PULMONARY ARTERIAL HYPERTENSION
     Dosage: 5 MG, DAILY
     Route: 048
  5. REMODULIN [Suspect]
     Active Substance: TREPROSTINIL
     Indication: PULMONARY HYPERTENSION
     Dosage: UNK (0.00125 ?G/KG/MIN)
     Route: 058
     Dates: start: 20150205
  6. REVATIO [Suspect]
     Active Substance: SILDENAFIL CITRATE
     Dosage: 40 MG, 3X/DAY

REACTIONS (9)
  - Dizziness [Unknown]
  - Infusion site pain [Recovering/Resolving]
  - Fatigue [Unknown]
  - Epistaxis [Unknown]
  - Drug administration error [Unknown]
  - Presyncope [Unknown]
  - Feeling abnormal [Unknown]
  - Hypotension [Unknown]
  - Infusion site erythema [Recovering/Resolving]

NARRATIVE: CASE EVENT DATE: 2015
